FAERS Safety Report 15067197 (Version 2)
Quarter: 2019Q3

REPORT INFORMATION
  Report Type: Report from Study
  Country: GB (occurrence: GB)
  Receive Date: 20180626
  Receipt Date: 20190709
  Transmission Date: 20191004
  Serious: Yes (Other)
  Sender: FDA-Public Use
  Company Number: GB-PFIZER INC-2018252373

PATIENT
  Sex: Male

DRUGS (2)
  1. SODIUM VALPROATE [Concomitant]
     Active Substance: VALPROATE SODIUM
     Dosage: UNK
     Route: 064
  2. LEVETIRACETAM. [Suspect]
     Active Substance: LEVETIRACETAM
     Dosage: UNK
     Route: 064

REACTIONS (3)
  - Autism spectrum disorder [Unknown]
  - Developmental delay [Unknown]
  - Maternal exposure during pregnancy [Unknown]
